FAERS Safety Report 9326217 (Version 1)
Quarter: 2013Q2

REPORT INFORMATION
  Report Type: Spontaneous
  Country: FR (occurrence: FR)
  Receive Date: 20130604
  Receipt Date: 20130604
  Transmission Date: 20140414
  Serious: Yes (Death, Hospitalization)
  Sender: FDA-Public Use
  Company Number: FR-PFIZER INC-2011002333

PATIENT
  Age: 86 Year
  Sex: Female

DRUGS (7)
  1. CORDARONE [Suspect]
     Indication: ATRIAL FIBRILLATION
     Dosage: 200 MG, DAILY
     Route: 048
     Dates: start: 20101119, end: 20101208
  2. KARDEGIC [Concomitant]
  3. CAPTOPRIL [Concomitant]
  4. AMLOR [Concomitant]
  5. LASILIX [Concomitant]
  6. PREVISCAN [Concomitant]
  7. SIMVASTATIN [Concomitant]

REACTIONS (3)
  - Hypothyroidism [Fatal]
  - Cardiac failure [Fatal]
  - Hyperthyroidism [Not Recovered/Not Resolved]
